FAERS Safety Report 5756130-5 (Version None)
Quarter: 2008Q2

REPORT INFORMATION
  Report Type: 
  Country: None (occurrence: None)
  Receive Date: 20080602
  Receipt Date: 20080527
  Transmission Date: 20081010
  Serious: Yes (Death)
  Sender: FDA-Public Use
  Company Number: US-GILEAD-2008-0016429

PATIENT
  Sex: Male

DRUGS (11)
  1. LETAIRIS [Suspect]
     Indication: PULMONARY ARTERIAL HYPERTENSION
     Route: 048
     Dates: start: 20080301
  2. COUMADIN [Concomitant]
  3. DIGOXIN [Concomitant]
  4. PRAVACHOL [Concomitant]
  5. GLIMEPIRIDE [Concomitant]
  6. AVAPRO [Concomitant]
  7. BUMETANIDE [Concomitant]
  8. POTASSIUM CHLORIDE [Concomitant]
  9. ALLOPURINOL [Concomitant]
  10. VITAMIN B-12 [Concomitant]
  11. ASPIRIN [Concomitant]

REACTIONS (2)
  - GANGRENE [None]
  - RENAL FAILURE [None]
